FAERS Safety Report 25745136 (Version 1)
Quarter: 2025Q3

REPORT INFORMATION
  Report Type: Spontaneous
  Country: EU (occurrence: EU)
  Receive Date: 20250901
  Receipt Date: 20250901
  Transmission Date: 20251021
  Serious: Yes (Death)
  Sender: CHEPLAPHARM
  Company Number: None

PATIENT
  Age: 76 Year
  Sex: Female
  Weight: 58 kg

DRUGS (10)
  1. CAPECITABINE [Suspect]
     Active Substance: CAPECITABINE
     Indication: HER2 positive breast cancer
     Route: 048
     Dates: start: 20250714, end: 20250801
  2. BISOPROLOL [Concomitant]
     Active Substance: BISOPROLOL
  3. FUROSEMIDE [Concomitant]
     Active Substance: FUROSEMIDE
  4. ELIQUIS [Concomitant]
     Active Substance: APIXABAN
  5. LERCANIDIPINE [Concomitant]
     Active Substance: LERCANIDIPINE
     Dosage: DAILY DOSE: 10 MILLIGRAM
  6. DAPAGLIFLOZIN [Concomitant]
     Active Substance: DAPAGLIFLOZIN
     Dosage: DAILY DOSE: 10 MILLIGRAM
  7. Calcidose [Concomitant]
  8. CHOLECALCIFEROL [Concomitant]
     Active Substance: CHOLECALCIFEROL
  9. ACETAMINOPHEN [Concomitant]
     Active Substance: ACETAMINOPHEN
  10. OMEPRAZOLE [Suspect]
     Active Substance: OMEPRAZOLE

REACTIONS (11)
  - Decreased appetite [Fatal]
  - Diarrhoea [Fatal]
  - Skin toxicity [Fatal]
  - Palmar-plantar erythrodysaesthesia syndrome [Fatal]
  - Acute kidney injury [Fatal]
  - Mucosal inflammation [Fatal]
  - Rectal haemorrhage [Fatal]
  - Febrile neutropenia [Fatal]
  - Lactic acidosis [Fatal]
  - Asthenia [Unknown]
  - Condition aggravated [Unknown]

NARRATIVE: CASE EVENT DATE: 20250801
